FAERS Safety Report 4425715-0 (Version None)
Quarter: 2004Q3

REPORT INFORMATION
  Report Type: 
  Country: None (occurrence: None)
  Receive Date: 20040810
  Receipt Date: 20040726
  Transmission Date: 20050211
  Serious: Yes (Hospitalization)
  Sender: FDA-Public Use
  Company Number: 196206

PATIENT
  Age: 49 Year
  Sex: Female

DRUGS (13)
  1. AVONEX [Suspect]
     Indication: MULTIPLE SCLEROSIS
     Dosage: 30 MCG QW IM
     Route: 030
     Dates: start: 19960101, end: 20040101
  2. AVONEX [Suspect]
     Indication: MULTIPLE SCLEROSIS
     Dosage: 30 MCG QW IM
     Route: 030
     Dates: start: 20040106, end: 20040401
  3. CYCLERT [Concomitant]
  4. NASACORT [Concomitant]
  5. PROZAC [Concomitant]
  6. BACLOFEN [Concomitant]
  7. ALLEGRA [Concomitant]
  8. AVAPRO [Concomitant]
  9. DETROL [Concomitant]
  10. NEXIUM [Concomitant]
  11. SINGULAIR [Concomitant]
  12. NEURONTIN [Concomitant]
  13. LIMBITROL [Concomitant]

REACTIONS (9)
  - BLOOD CHOLESTEROL INCREASED [None]
  - DISEASE RECURRENCE [None]
  - GRANULOCYTE COUNT INCREASED [None]
  - HEPATITIS [None]
  - HIGH DENSITY LIPOPROTEIN INCREASED [None]
  - LYMPHOCYTE COUNT DECREASED [None]
  - MONOCYTE COUNT INCREASED [None]
  - PNEUMONIA [None]
  - RED CELL DISTRIBUTION WIDTH INCREASED [None]
